FAERS Safety Report 19042798 (Version 1)
Quarter: 2021Q1

REPORT INFORMATION
  Report Type: Spontaneous
  Country: US (occurrence: US)
  Receive Date: 20210323
  Receipt Date: 20210323
  Transmission Date: 20210420
  Serious: No
  Sender: FDA-Public Use
  Company Number: US-AIMMUNE THERAPEUTICS, INC.-2021AIMT00140

PATIENT

DRUGS (2)
  1. PALFORZIA [Suspect]
     Active Substance: PEANUT
     Dosage: 200 MG, ONCE,LAST DOSE OF PALFORZIA TAKE PRIOR TO ONSET OF EVENTS
     Route: 048
     Dates: start: 20210304, end: 20210304
  2. PALFORZIA [Suspect]
     Active Substance: PEANUT
     Indication: FOOD ALLERGY
     Dosage: 200 MG, 1X/DAY
     Route: 048
     Dates: start: 20201029, end: 20210304

REACTIONS (2)
  - Abdominal discomfort [Unknown]
  - Vomiting [Unknown]

NARRATIVE: CASE EVENT DATE: 20210304
